FAERS Safety Report 16653859 (Version 1)
Quarter: 2019Q3

REPORT INFORMATION
  Report Type: Spontaneous
  Country: HU (occurrence: HU)
  Receive Date: 20190731
  Receipt Date: 20190731
  Transmission Date: 20191004
  Serious: Yes (Hospitalization, Other)
  Sender: FDA-Public Use
  Company Number: HU-ALLERGAN-1931204US

PATIENT
  Sex: Male

DRUGS (3)
  1. CARIPRAZINE HCL - BP [Suspect]
     Active Substance: CARIPRAZINE HYDROCHLORIDE
     Indication: PRODUCT USED FOR UNKNOWN INDICATION
     Dosage: 6 MG
     Route: 065
  2. MOCRIM [Suspect]
     Active Substance: MOCLOBEMIDE
     Indication: PRODUCT USED FOR UNKNOWN INDICATION
     Route: 065
  3. KETILEPT [Suspect]
     Active Substance: QUETIAPINE FUMARATE
     Indication: PRODUCT USED FOR UNKNOWN INDICATION
     Dosage: 1200 MG
     Route: 065

REACTIONS (6)
  - Autonomic nervous system imbalance [Recovered/Resolved]
  - Confusional state [Recovered/Resolved]
  - Tremor [Recovered/Resolved]
  - Hyperhidrosis [Recovered/Resolved]
  - Aggression [Recovered/Resolved]
  - Eye movement disorder [Recovered/Resolved]
